FAERS Safety Report 5034698-4 (Version None)
Quarter: 2006Q2

REPORT INFORMATION
  Report Type: 
  Country: None (occurrence: None)
  Receive Date: 20060621
  Receipt Date: 20060614
  Transmission Date: 20061013
  Serious: Yes (Hospitalization)
  Sender: FDA-Public Use
  Company Number: 200610471BWH

PATIENT
  Age: 74 Year
  Sex: Female
  Weight: 81.6 kg

DRUGS (11)
  1. SORAFENIB [Suspect]
     Indication: METASTATIC MALIGNANT MELANOMA
     Dosage: 400 MG, BID, ORAL
     Route: 048
     Dates: start: 20051215, end: 20060223
  2. DACARBAZINE [Suspect]
     Dosage: 1970 MG, TOTAL DAILY, INTRAVEN; SEE IMAGE
     Route: 042
     Dates: start: 20051215
  3. DACARBAZINE [Suspect]
     Dosage: 1970 MG, TOTAL DAILY, INTRAVEN; SEE IMAGE
     Route: 042
     Dates: start: 20060112
  4. AVANDIA [Concomitant]
  5. LEVOXYL [Concomitant]
  6. DIOVAN [Concomitant]
  7. CRESTOR [Concomitant]
  8. LORTAB [Concomitant]
  9. PHENERGAN [Concomitant]
  10. AMARYL [Concomitant]
  11. PRILOSEC [Concomitant]

REACTIONS (12)
  - ACUTE CORONARY SYNDROME [None]
  - ARTERIOSCLEROSIS CORONARY ARTERY [None]
  - ATRIAL FIBRILLATION [None]
  - ATRIAL FLUTTER [None]
  - DILATATION ATRIAL [None]
  - EJECTION FRACTION DECREASED [None]
  - INTRACARDIAC THROMBUS [None]
  - ISCHAEMIC CARDIOMYOPATHY [None]
  - MYOCARDIAL INFARCTION [None]
  - SINUS TACHYCARDIA [None]
  - TRICUSPID VALVE INCOMPETENCE [None]
  - VENTRICULAR HYPERTROPHY [None]
